FAERS Safety Report 18064036 (Version 3)
Quarter: 2022Q3

REPORT INFORMATION
  Report Type: Report from Study
  Country: US (occurrence: US)
  Receive Date: 20200724
  Receipt Date: 20220824
  Transmission Date: 20221027
  Serious: No
  Sender: FDA-Public Use
  Company Number: US-SHIRE-US202023806

PATIENT
  Sex: Female

DRUGS (1)
  1. LANADELUMAB [Suspect]
     Active Substance: LANADELUMAB
     Indication: Hereditary angioedema
     Dosage: 300 MILLIGRAM, Q2WEEKS
     Route: 058

REACTIONS (8)
  - Drug ineffective [Unknown]
  - Pregnancy [Unknown]
  - Hereditary angioedema [Unknown]
  - Rash [Unknown]
  - Blood pressure increased [Unknown]
  - Headache [Unknown]
  - Dyspepsia [Unknown]
  - Product dose omission issue [Unknown]
